FAERS Safety Report 21769036 (Version 1)
Quarter: 2022Q4

REPORT INFORMATION
  Report Type: Spontaneous
  Country: US (occurrence: US)
  Receive Date: 20221222
  Receipt Date: 20221222
  Transmission Date: 20230113
  Serious: No
  Sender: FDA-Public Use
  Company Number: US-VIIV HEALTHCARE LIMITED-US2022AMR187848

PATIENT
  Age: 61 Year
  Sex: Male

DRUGS (2)
  1. RILPIVIRINE [Suspect]
     Active Substance: RILPIVIRINE
     Indication: HIV infection
     Dosage: UNK, UNK, Z 400MG-600MG - 2 INJECTIONS, ONCE MONTHLY,0MG/2ML
     Route: 065
     Dates: start: 20220809
  2. CABOTEGRAVIR [Suspect]
     Active Substance: CABOTEGRAVIR
     Indication: HIV infection
     Dosage: UNK, UNK, Z 400MG-600MG - 2 INJECTIONS, ONCE MONTHLY,0MG/2ML
     Route: 065
     Dates: start: 20220809

REACTIONS (1)
  - Product dose omission issue [Not Recovered/Not Resolved]

NARRATIVE: CASE EVENT DATE: 20221020
